FAERS Safety Report 5590314-4 (Version None)
Quarter: 2007Q4

REPORT INFORMATION
  Report Type: 
  Country: None (occurrence: None)
  Receive Date: 20071214
  Receipt Date: 20070605
  Transmission Date: 20080405
  Serious: Yes (Other)
  Sender: FDA-Public Use
  Company Number: 2007045886

PATIENT
  Sex: Male

DRUGS (1)
  1. XANAX [Suspect]
     Dates: start: 20070101

REACTIONS (4)
  - CONVULSION [None]
  - HEADACHE [None]
  - SOMNOLENCE [None]
  - VOMITING [None]
